FAERS Safety Report 10611870 (Version 2)
Quarter: 2015Q1

REPORT INFORMATION
  Report Type: Spontaneous
  Country: US (occurrence: US)
  Receive Date: 20141126
  Receipt Date: 20150212
  Transmission Date: 20150720
  Serious: No
  Sender: FDA-Public Use
  Company Number: US-TEVA-519049USA

PATIENT
  Age: 41 Year
  Sex: Male

DRUGS (1)
  1. CLARAVIS [Suspect]
     Active Substance: ISOTRETINOIN

REACTIONS (12)
  - Dry skin [Unknown]
  - Dry eye [Unknown]
  - Vomiting [Recovered/Resolved]
  - Photosensitivity reaction [Unknown]
  - Diarrhoea [Recovered/Resolved]
  - Abdominal pain [Unknown]
  - Mood altered [Unknown]
  - Appetite disorder [Unknown]
  - Lip dry [Unknown]
  - Gastrointestinal disorder [Unknown]
  - Contusion [Unknown]
  - Nausea [Recovered/Resolved]
